FAERS Safety Report 6837882-X (Version None)
Quarter: 2010Q3

REPORT INFORMATION
  Report Type: 
  Country: None (occurrence: None)
  Receive Date: 20100713
  Receipt Date: 20070429
  Transmission Date: 20110219
  Serious: No
  Sender: FDA-Public Use
  Company Number: US-PFIZER INC-2007035351

PATIENT
  Sex: Female
  Weight: 136.08 kg

DRUGS (5)
  1. CHANTIX [Suspect]
     Indication: SMOKING CESSATION THERAPY
     Route: 048
     Dates: start: 20070420
  2. AZMACORT [Concomitant]
     Indication: ASTHMA
  3. ADVAIR DISKUS 100/50 [Concomitant]
     Indication: ASTHMA
  4. SPIRIVA [Concomitant]
     Indication: ASTHMA
  5. MONTELUKAST SODIUM [Concomitant]
     Indication: ASTHMA

REACTIONS (1)
  - HEADACHE [None]
